FAERS Safety Report 7224320-0 (Version None)
Quarter: 2011Q1

REPORT INFORMATION
  Report Type: 
  Country: None (occurrence: None)
  Receive Date: 20110113
  Receipt Date: 20110107
  Transmission Date: 20110831
  Serious: Yes (Hospitalization)
  Sender: FDA-Public Use
  Company Number: AU-PFIZER INC-2010170831

PATIENT
  Age: 68 Year
  Sex: Female
  Weight: 72 kg

DRUGS (20)
  1. METHOTREXATE SODIUM [Concomitant]
     Indication: RHEUMATOID ARTHRITIS
     Dosage: 5 MG, WEEKLY
     Route: 048
     Dates: start: 20090301
  2. ACETYLSALICYLIC ACID [Concomitant]
     Indication: CARDIOVASCULAR EVENT PROPHYLAXIS
     Dosage: 100 MG, 1X/DAY
     Route: 048
     Dates: start: 20080101
  3. SALBUTAMOL [Concomitant]
     Indication: BRONCHIECTASIS
     Dosage: 100 UG, AS NEEDED
     Route: 055
     Dates: start: 20101015
  4. PREDNISOLONE [Concomitant]
     Indication: RHEUMATOID ARTHRITIS
     Dosage: 10 MG, 1X/DAY
     Route: 048
     Dates: start: 20090601, end: 20101201
  5. SLOW-K [Concomitant]
     Indication: VITAMIN SUPPLEMENTATION
     Dosage: 2 TABLETS DAILY
     Route: 048
     Dates: start: 20050101
  6. METOPROLOL [Concomitant]
     Indication: HYPERTENSION
     Dosage: 25 MG, 1X/DAY
     Route: 048
     Dates: start: 20100607
  7. CP-690,550 [Suspect]
     Indication: RHEUMATOID ARTHRITIS
     Dosage: 10 MG, 2X/DAY
     Route: 048
     Dates: start: 20101004
  8. FOLIC ACID [Concomitant]
     Dosage: 5 MG, ALTERNATE DAY EXCEPT MTX DAYS
     Route: 048
     Dates: start: 20101102
  9. ENDEP [Suspect]
     Indication: FIBROMYALGIA
     Dosage: 100 MG, 1X/DAY
     Route: 048
     Dates: start: 20030601, end: 20101201
  10. CALTRATE [Concomitant]
     Indication: PROPHYLAXIS
     Dosage: ONE TABLET DAILY
     Route: 048
     Dates: start: 20090101
  11. SERETIDE [Concomitant]
     Indication: BRONCHIECTASIS
     Dosage: ONE PUFF TWICE DAILY
     Route: 055
     Dates: start: 20101117
  12. CRESTOR [Concomitant]
     Indication: BLOOD CHOLESTEROL
     Dosage: 5 MG, 1X/DAY
     Route: 048
     Dates: start: 20101117
  13. KARVEZIDE [Concomitant]
     Indication: HYPERTENSION
     Dosage: 12.5/300 MG DAILY
     Route: 048
     Dates: start: 20100607
  14. FOLIC ACID [Concomitant]
     Indication: RHEUMATOID ARTHRITIS
     Dosage: 5 MG, WEEKLY
     Route: 048
     Dates: start: 20090301, end: 20101101
  15. DI-GESIC [Concomitant]
     Indication: RHEUMATOID ARTHRITIS
     Dosage: 2 TABLETS THREE TIMES DAILY
     Route: 048
     Dates: start: 20050101
  16. CYMBALTA [Suspect]
     Dosage: UNK
     Dates: start: 20101203
  17. VAGIFEM [Concomitant]
     Indication: PROPHYLAXIS URINARY TRACT INFECTION
     Dosage: 1 SUPPOSITORY AS NEEDED
     Route: 067
     Dates: start: 20100519
  18. PREDNISOLONE [Concomitant]
     Dosage: 9 MG, 1X/DAY
     Route: 048
     Dates: start: 20101202
  19. AUGMENTIN '125' [Concomitant]
     Indication: BRONCHIECTASIS
     Dosage: ONE TABLET TWICE DAILY
     Route: 048
     Dates: start: 20101117
  20. NEXIUM [Concomitant]
     Indication: GASTROOESOPHAGEAL REFLUX DISEASE
     Dosage: 20 MG, 1X/DAY
     Route: 048
     Dates: start: 20101102

REACTIONS (1)
  - SEROTONIN SYNDROME [None]
